FAERS Safety Report 9206074 (Version 2)
Quarter: 2013Q2

REPORT INFORMATION
  Report Type: Spontaneous
  Country: US (occurrence: None)
  Receive Date: 20120731
  Receipt Date: 20121130
  Transmission Date: 20140414
  Serious: Yes (Other)
  Sender: FDA-Public Use
  Company Number: US201205009027

PATIENT
  Age: 53 Year
  Sex: Female
  Weight: 115.6 kg

DRUGS (3)
  1. BYETTA [Suspect]
     Indication: TYPE 2 DIABETES MELLITUS
     Route: 058
     Dates: start: 201102, end: 201103
  2. BYETTA [Suspect]
     Route: 058
     Dates: start: 201102, end: 201103
  3. LANTUS (INSULIN GLARGINE) ONGOING [Concomitant]

REACTIONS (3)
  - Pancreatitis [None]
  - Blood glucose increased [None]
  - Dyspepsia [None]
